FAERS Safety Report 9416464 (Version 1)
Quarter: 2013Q3

REPORT INFORMATION
  Report Type: Spontaneous
  Country: TN (occurrence: TN)
  Receive Date: 20130724
  Receipt Date: 20130724
  Transmission Date: 20140515
  Serious: Yes (Other)
  Sender: FDA-Public Use
  Company Number: PHHY2013TN076333

PATIENT
  Age: 6 Year
  Sex: Male

DRUGS (5)
  1. IMATINIB [Suspect]
     Indication: ACUTE LYMPHOCYTIC LEUKAEMIA
     Dosage: 200 MG, PER DAY
     Dates: start: 20110408
  2. IMATINIB [Suspect]
     Dosage: 300 MG, PER DAY
     Dates: start: 20110506
  3. IMATINIB [Suspect]
     Dosage: 200 MG, PER DAY
     Dates: start: 20110527
  4. IMATINIB [Suspect]
     Dosage: 200 MG, PER DAY
     Dates: start: 20110727
  5. IMATINIB [Suspect]
     Dosage: 100 MG, PER DAY

REACTIONS (10)
  - Toxicity to various agents [Unknown]
  - Hypoproteinaemia [Unknown]
  - Cell death [Unknown]
  - Respiratory failure [Unknown]
  - Haematotoxicity [Unknown]
  - Hepatotoxicity [Unknown]
  - Generalised oedema [Unknown]
  - Pulmonary oedema [Unknown]
  - Vomiting [Unknown]
  - Abdominal pain [Unknown]
